FAERS Safety Report 11852889 (Version 1)
Quarter: 2015Q4

REPORT INFORMATION
  Report Type: Spontaneous
  Country: US (occurrence: US)
  Receive Date: 20151218
  Receipt Date: 20151218
  Transmission Date: 20160305
  Serious: No
  Sender: FDA-Public Use
  Company Number: US-ECLAT PHARMACEUTICALS-2015ECL00012

PATIENT

DRUGS (2)
  1. BLOXIVERZ [Suspect]
     Active Substance: NEOSTIGMINE METHYLSULFATE
  2. GLYCOPYRROLATE. [Suspect]
     Active Substance: GLYCOPYRROLATE

REACTIONS (2)
  - Tachycardia [Unknown]
  - Drug ineffective [Unknown]
